FAERS Safety Report 9191696 (Version 1)
Quarter: 2013Q1

REPORT INFORMATION
  Report Type: Spontaneous
  Country: US (occurrence: US)
  Receive Date: 20130326
  Receipt Date: 20130326
  Transmission Date: 20140127
  Serious: No
  Sender: FDA-Public Use
  Company Number: US-009507513-1303USA008475

PATIENT
  Sex: Male

DRUGS (1)
  1. COPPERTONE SENSITIVE SKIN FACES SPF-50 [Suspect]
     Indication: PRODUCT USED FOR UNKNOWN INDICATION
     Dosage: UNK, UNKNOWN
     Route: 061

REACTIONS (5)
  - Eye pain [Unknown]
  - Eye irritation [Unknown]
  - Sunburn [Not Recovered/Not Resolved]
  - Hyperhidrosis [Unknown]
  - Drug ineffective [Unknown]
